FAERS Safety Report 9839584 (Version 3)
Quarter: 2014Q1

REPORT INFORMATION
  Report Type: Report from Study
  Country: CA (occurrence: CA)
  Receive Date: 20140124
  Receipt Date: 20140221
  Transmission Date: 20141002
  Serious: Yes (Other)
  Sender: FDA-Public Use
  Company Number: CA-ROCHE-1229345

PATIENT
  Age: 67 Year
  Sex: Female
  Weight: 63.5 kg

DRUGS (17)
  1. RITUXAN [Suspect]
     Indication: RHEUMATOID ARTHRITIS
     Dosage: DAY 1 AND DAY 15
     Route: 042
     Dates: start: 20130523
  2. RITUXAN [Suspect]
     Dosage: DAY 1 AND DAY 15
     Route: 042
     Dates: start: 20140210
  3. ACETAMINOPHEN [Concomitant]
     Route: 048
     Dates: start: 20130523
  4. METHYLPREDNISOLON [Concomitant]
     Route: 042
     Dates: start: 20130523
  5. PREDNISONE [Concomitant]
  6. ARAVA [Concomitant]
  7. PLAQUENIL [Concomitant]
  8. DICLOFENAC [Concomitant]
  9. SYNTHYROID [Concomitant]
  10. KRILL OIL [Concomitant]
  11. ACTONEL [Concomitant]
  12. CYMBALTA [Concomitant]
  13. MAGNESIUM GLYCINATE [Concomitant]
  14. IMOVANE [Concomitant]
  15. HYDROMORPHONE [Concomitant]
  16. PREMARIN [Concomitant]
  17. LEFLUNOMIDE [Concomitant]

REACTIONS (9)
  - Pubis fracture [Unknown]
  - Fall [Unknown]
  - Bone fragmentation [Unknown]
  - Rib fracture [Unknown]
  - Gastric disorder [Recovered/Resolved]
  - Infusion related reaction [Recovered/Resolved]
  - Arthritis [Unknown]
  - Off label use [Unknown]
  - Infusion related reaction [Recovered/Resolved]
